FAERS Safety Report 6820004-9 (Version None)
Quarter: 2010Q3

REPORT INFORMATION
  Report Type: 
  Country: None (occurrence: None)
  Receive Date: 20100707
  Receipt Date: 20100625
  Transmission Date: 20110219
  Serious: Yes (Hospitalization)
  Sender: FDA-Public Use
  Company Number: FR-SANOFI-AVENTIS-2010SA036778

PATIENT
  Age: 78 Year
  Sex: Female

DRUGS (4)
  1. LASIX [Suspect]
     Route: 048
     Dates: start: 20100414, end: 20100508
  2. TRIATEC [Suspect]
     Route: 048
     Dates: start: 20100414
  3. PREVISCAN [Suspect]
     Indication: MITRAL VALVOTOMY
     Route: 048
     Dates: start: 20100414, end: 20100508
  4. CARDENSIEL [Suspect]
     Route: 048
     Dates: start: 20100414, end: 20100508

REACTIONS (1)
  - DRUG RASH WITH EOSINOPHILIA AND SYSTEMIC SYMPTOMS [None]
